FAERS Safety Report 15693724 (Version 2)
Quarter: 2020Q4

REPORT INFORMATION
  Report Type: Spontaneous
  Country: US (occurrence: US)
  Receive Date: 20181206
  Receipt Date: 20201007
  Transmission Date: 20210113
  Serious: Yes (Other)
  Sender: FDA-Public Use
  Company Number: US-JNJFOC-20181137624

PATIENT
  Age: 7 Year
  Sex: Male
  Weight: 21.79 kg

DRUGS (1)
  1. SIMPONI [Suspect]
     Active Substance: GOLIMUMAB
     Indication: ANKYLOSING SPONDYLITIS
     Route: 064

REACTIONS (3)
  - Respiratory disorder [Unknown]
  - Mass [Unknown]
  - Foetal exposure during pregnancy [Recovered/Resolved]
